FAERS Safety Report 6795205-9 (Version None)
Quarter: 2010Q2

REPORT INFORMATION
  Report Type: 
  Country: None (occurrence: None)
  Receive Date: 20100624
  Receipt Date: 20100624
  Transmission Date: 20101027
  Serious: Yes (Hospitalization)
  Sender: FDA-Public Use
  Company Number: None

PATIENT
  Age: 57 Year
  Sex: Female
  Weight: 72.5 kg

DRUGS (13)
  1. PRISTIQ [Suspect]
     Indication: DEPRESSION
     Dosage: 50 MG DAILY PO
     Route: 048
  2. NORTRIPTYLINE 50 MG [Suspect]
     Indication: NEUROPATHY PERIPHERAL
     Dosage: 150 MG NIGHTLY PO
     Route: 048
  3. LORAZEPAM [Concomitant]
  4. LORATADINE [Concomitant]
  5. NAPROXEN [Concomitant]
  6. CHLORPHENIRAMINE MALEATE [Concomitant]
  7. AMBIEN [Concomitant]
  8. FLEXERIL [Concomitant]
  9. FISH OIL [Concomitant]
  10. CINNNAMON [Concomitant]
  11. ZINC [Concomitant]
  12. FOLIC ACID [Concomitant]
  13. MILK THISTLE [Concomitant]

REACTIONS (2)
  - CONVULSION [None]
  - ROAD TRAFFIC ACCIDENT [None]
